FAERS Safety Report 12154948 (Version 3)
Quarter: 2016Q1

REPORT INFORMATION
  Report Type: Report from Study
  Country: US (occurrence: US)
  Receive Date: 20160307
  Receipt Date: 20160325
  Transmission Date: 20160526
  Serious: Yes (Hospitalization, Other)
  Sender: FDA-Public Use
  Company Number: US-BAYER-2016-008972

PATIENT
  Age: 57 Year
  Sex: Female
  Weight: 46.26 kg

DRUGS (6)
  1. VELETRI [Concomitant]
     Active Substance: EPOPROSTENOL
     Dosage: UNK
  2. ADEMPAS [Suspect]
     Active Substance: RIOCIGUAT
     Indication: PULMONARY ARTERIAL HYPERTENSION
     Dosage: 2.5 MG, TID
     Route: 048
  3. ADEMPAS [Suspect]
     Active Substance: RIOCIGUAT
     Indication: PULMONARY ARTERIAL HYPERTENSION
     Dosage: UNK
     Dates: start: 20150723
  4. ADEMPAS [Suspect]
     Active Substance: RIOCIGUAT
     Indication: PULMONARY ARTERIAL HYPERTENSION
     Dosage: 2.5 MG, TID
     Route: 048
  5. ADEMPAS [Suspect]
     Active Substance: RIOCIGUAT
     Indication: PULMONARY ARTERIAL HYPERTENSION
     Dosage: 2.5 MG, TID
     Route: 048
  6. OPSUMIT [Concomitant]
     Active Substance: MACITENTAN
     Dosage: UNK

REACTIONS (13)
  - Musculoskeletal pain [Unknown]
  - Catheter site related reaction [Unknown]
  - Device related infection [None]
  - Catheter site infection [Unknown]
  - Dyspnoea [Unknown]
  - Neck pain [Unknown]
  - Hospitalisation [None]
  - Device related infection [Unknown]
  - Device related infection [Unknown]
  - Respiratory tract congestion [Unknown]
  - Erythema [Unknown]
  - Arthritis [Unknown]
  - Sluggishness [Unknown]

NARRATIVE: CASE EVENT DATE: 201512
